FAERS Safety Report 21297937 (Version 1)
Quarter: 2022Q3

REPORT INFORMATION
  Report Type: Spontaneous
  Country: US (occurrence: None)
  Receive Date: 20220902
  Receipt Date: 20220902
  Transmission Date: 20221027
  Serious: Yes (Other)
  Sender: FDA-Public Use
  Company Number: None

PATIENT
  Age: 70 Year
  Sex: Female

DRUGS (23)
  1. OPSUMIT [Suspect]
     Active Substance: MACITENTAN
     Indication: Pulmonary arterial hypertension
     Dosage: FREQUENCY : DAILY;?
     Route: 048
     Dates: start: 20200103
  2. SILDENAFIL CITRATE [Suspect]
     Active Substance: SILDENAFIL CITRATE
  3. SILDENAFIL [Concomitant]
     Active Substance: SILDENAFIL
  4. GABAPENTIN [Concomitant]
     Active Substance: GABAPENTIN
  5. OXYBUTYNIN [Concomitant]
     Active Substance: OXYBUTYNIN
  6. BENZONATATE [Concomitant]
     Active Substance: BENZONATATE
  7. WIXELA INHUB [Concomitant]
     Active Substance: FLUTICASONE PROPIONATE\SALMETEROL XINAFOATE
  8. BACLOFEN [Concomitant]
     Active Substance: BACLOFEN
  9. MONTELUKAST [Concomitant]
     Active Substance: MONTELUKAST SODIUM
  10. SPIRONOLACTONE [Concomitant]
     Active Substance: SPIRONOLACTONE
  11. LOSARTAN [Concomitant]
     Active Substance: LOSARTAN
  12. NIFEDIPINE [Concomitant]
     Active Substance: NIFEDIPINE
  13. FUROSEMIDE [Concomitant]
     Active Substance: FUROSEMIDE
  14. ATORVASTATIN [Concomitant]
     Active Substance: ATORVASTATIN
  15. BUPROPION [Concomitant]
     Active Substance: BUPROPION
  16. ASTELIN [Concomitant]
     Active Substance: AZELASTINE HYDROCHLORIDE
  17. FAMOTIDINE [Concomitant]
     Active Substance: FAMOTIDINE
  18. ALBUTEROL SULFATE [Concomitant]
     Active Substance: ALBUTEROL SULFATE
  19. FERROUS SULFATE [Concomitant]
     Active Substance: FERROUS SULFATE
  20. ALBUTEROL [Concomitant]
     Active Substance: ALBUTEROL
  21. TYLENOL [Concomitant]
     Active Substance: ACETAMINOPHEN
  22. CETIRIZINE [Concomitant]
     Active Substance: CETIRIZINE HYDROCHLORIDE
  23. ASPIRIN [Concomitant]
     Active Substance: ASPIRIN

REACTIONS (2)
  - Back pain [None]
  - Limb discomfort [None]

NARRATIVE: CASE EVENT DATE: 20220902
